FAERS Safety Report 14409904 (Version 1)
Quarter: 2018Q1

REPORT INFORMATION
  Report Type: Spontaneous
  Country: US (occurrence: US)
  Receive Date: 20180116
  Receipt Date: 20180116
  Transmission Date: 20180509
  Serious: No
  Sender: FDA-Public Use
  Company Number: None

PATIENT
  Sex: Male

DRUGS (1)
  1. DUPIXENT [Suspect]
     Active Substance: DUPILUMAB
     Indication: DERMATITIS ATOPIC
     Dosage: DEC2017-INTERRUPTED
     Route: 058
     Dates: start: 201712

REACTIONS (3)
  - Pruritus [None]
  - Skin exfoliation [None]
  - Burning sensation [None]
